FAERS Safety Report 19840847 (Version 1)
Quarter: 2021Q3

REPORT INFORMATION
  Report Type: Spontaneous
  Country: DE (occurrence: DE)
  Receive Date: 20210916
  Receipt Date: 20210916
  Transmission Date: 20211014
  Serious: Yes (Hospitalization, Other)
  Sender: FDA-Public Use
  Company Number: DE-TEVA-2021-DE-1951595

PATIENT
  Age: 79 Year
  Sex: Male
  Weight: 100 kg

DRUGS (13)
  1. METOPROLOL. [Concomitant]
     Active Substance: METOPROLOL
     Dosage: 95 MILLIGRAM DAILY; 1?0?1?0
     Route: 048
  2. PYRIDOXIN (VITAMIN B6)/THIAMIN (VITAMIN B1) [Concomitant]
     Dosage: 1 DOSAGE FORMS DAILY; 91.89 | 82.27 MG, 1?0?0?0
     Route: 048
  3. CYANOCOBALAMIN (VITAMIN B12) [Concomitant]
     Dosage: 1 DOSAGE FORMS DAILY; 1?0?0?0
     Route: 048
  4. PANTOPRAZOL [Concomitant]
     Active Substance: PANTOPRAZOLE SODIUM
     Dosage: 80 MILLIGRAM DAILY; 1?0?1?0
     Route: 048
  5. FUROSEMID [Concomitant]
     Active Substance: FUROSEMIDE
     Dosage: 125 MILLIGRAM DAILY; 1?0?0?0
     Route: 048
  6. CALCIUMCARBONAT [Concomitant]
     Dosage: 500 MILLIGRAM DAILY;  0?1?0?0
     Route: 048
  7. ULTIBRO BREEZHALER 85MIKROGRAMM/43MIKROGRAMM [Concomitant]
     Dosage: 1 DOSAGE FORMS DAILY; CAPSULES FOR INHALATION, 43 | 85 MCG, 1?0?0?0,
     Route: 055
  8. CITRONENSAURE/KALIUMCARBONAT/KALIUMCITRAT [Concomitant]
     Dosage: 2 DOSAGE FORMS DAILY; 1?0?1?0
     Route: 048
  9. PREDNISOLON [Suspect]
     Active Substance: PREDNISOLONE
     Dosage: 10 MILLIGRAM DAILY; 1?0?0?0
     Route: 048
  10. LACTULOSE. [Concomitant]
     Active Substance: LACTULOSE
     Dosage: 66.7 G, TEN ML IF NECESSARY, JUICE
     Route: 048
  11. EDOXABAN [Suspect]
     Active Substance: EDOXABAN TOSYLATE
     Dosage: 60 MILLIGRAM DAILY; 1?0?0?0
     Route: 048
  12. PRAVASTATIN. [Concomitant]
     Active Substance: PRAVASTATIN
     Dosage: 10 MILLIGRAM DAILY; 0?0?1?0
     Route: 048
  13. COLECALCIFEROL (VITAMIN D) [Concomitant]
     Active Substance: CHOLECALCIFEROL
     Dosage: 1000 MILLIGRAM DAILY; 1?0?0?0
     Route: 048

REACTIONS (5)
  - Cardiac failure [Unknown]
  - Cough [Unknown]
  - Oedema peripheral [Unknown]
  - Asthenia [Unknown]
  - Weight increased [Unknown]
